FAERS Safety Report 5258716-3 (Version None)
Quarter: 2007Q1

REPORT INFORMATION
  Report Type: 
  Country: None (occurrence: None)
  Receive Date: 20070306
  Receipt Date: 20070306
  Transmission Date: 20070707
  Serious: Yes (Life-Threatening)
  Sender: FDA-Public Use
  Company Number: None

PATIENT
  Sex: Male
  Weight: 96.9 kg

DRUGS (1)
  1. CETUXIMAB 2 MG PER ML, 50 ML VIAL BRISTOL MYER SQUIBB [Suspect]
     Indication: COLON CANCER RECURRENT
     Dosage: 800 MG IN 500 ML OVER 2 HOURS IVF
     Route: 042

REACTIONS (1)
  - ANAPHYLACTIC REACTION [None]
